FAERS Safety Report 4395380-X (Version None)
Quarter: 2004Q3

REPORT INFORMATION
  Report Type: 
  Country: None (occurrence: None)
  Receive Date: 20040712
  Receipt Date: 20040712
  Transmission Date: 20050211
  Serious: Yes (Other)
  Sender: FDA-Public Use
  Company Number: None

PATIENT
  Age: 4 Month
  Sex: Male

DRUGS (1)
  1. IMMUNE GLOBULIN (HUMAN) [Suspect]
     Dosage: IM- LEFT LEG
     Route: 030
     Dates: start: 20040628

REACTIONS (2)
  - RASH [None]
  - URTICARIA GENERALISED [None]
